FAERS Safety Report 18733265 (Version 3)
Quarter: 2021Q2

REPORT INFORMATION
  Report Type: Spontaneous
  Country: US (occurrence: US)
  Receive Date: 20210113
  Receipt Date: 20210622
  Transmission Date: 20210717
  Serious: Yes (Other)
  Sender: FDA-Public Use
  Company Number: US-GILEAD-2021-0512540

PATIENT
  Age: 51 Year
  Sex: Female
  Weight: 93.42 kg

DRUGS (56)
  1. VIREAD [Suspect]
     Active Substance: TENOFOVIR DISOPROXIL FUMARATE
     Indication: HIV INFECTION
     Dosage: UNK
     Route: 048
     Dates: start: 2017, end: 2019
  2. AMOXICILLIN. [Concomitant]
     Active Substance: AMOXICILLIN
  3. SUSTIVA [Concomitant]
     Active Substance: EFAVIRENZ
  4. VALTREX [Concomitant]
     Active Substance: VALACYCLOVIR HYDROCHLORIDE
  5. ENALAPRIL [Concomitant]
     Active Substance: ENALAPRIL
  6. FLUCONAZOLE. [Concomitant]
     Active Substance: FLUCONAZOLE
  7. ATENOLOL. [Concomitant]
     Active Substance: ATENOLOL
  8. TRAMADOL. [Concomitant]
     Active Substance: TRAMADOL
  9. VICODIN [Concomitant]
     Active Substance: ACETAMINOPHEN\HYDROCODONE BITARTRATE
  10. METRONIDAZOLE. [Concomitant]
     Active Substance: METRONIDAZOLE
  11. RITONAVIR. [Concomitant]
     Active Substance: RITONAVIR
  12. DOXYCYCLINE MONOHYDRATE [Concomitant]
     Active Substance: DOXYCYCLINE
  13. ACYCLOVIR [ACICLOVIR] [Concomitant]
     Active Substance: ACYCLOVIR
  14. PREDNISONE. [Concomitant]
     Active Substance: PREDNISONE
  15. RETROVIR [Concomitant]
     Active Substance: ZIDOVUDINE
  16. METOPROLOL. [Concomitant]
     Active Substance: METOPROLOL
  17. EPIVIR [Concomitant]
     Active Substance: LAMIVUDINE
  18. EDURANT [Concomitant]
     Active Substance: RILPIVIRINE HYDROCHLORIDE
  19. REYATAZ [Concomitant]
     Active Substance: ATAZANAVIR SULFATE
  20. SULFAMETHOXAZOLE AND TRIMETHOPRIM [Concomitant]
     Active Substance: SULFAMETHOXAZOLE\TRIMETHOPRIM
  21. CLOPIDOGREL [Concomitant]
     Active Substance: CLOPIDOGREL BISULFATE
  22. CETIRIZINE [Concomitant]
     Active Substance: CETIRIZINE HYDROCHLORIDE
  23. DOXEPIN [Concomitant]
     Active Substance: DOXEPIN
  24. IBUPROFEN. [Concomitant]
     Active Substance: IBUPROFEN
  25. NAPROXEN. [Concomitant]
     Active Substance: NAPROXEN
  26. DIAZEPAM. [Concomitant]
     Active Substance: DIAZEPAM
  27. ACETAMINOPHEN. [Concomitant]
     Active Substance: ACETAMINOPHEN
  28. VERAPAMIL [Concomitant]
     Active Substance: VERAPAMIL HYDROCHLORIDE
  29. TRAZODONE [Concomitant]
     Active Substance: TRAZODONE HYDROCHLORIDE
  30. AZITHROMYCIN ANHYDROUS. [Concomitant]
     Active Substance: AZITHROMYCIN ANHYDROUS
  31. AMLODIPINE BESYLATE. [Concomitant]
     Active Substance: AMLODIPINE BESYLATE
  32. HYDROXYZINE [Concomitant]
     Active Substance: HYDROXYZINE HYDROCHLORIDE
  33. CEFPODOXIME [Concomitant]
     Active Substance: CEFPODOXIME
  34. ASPIRIN [ACETYLSALICYLIC ACID] [Concomitant]
     Active Substance: ASPIRIN
  35. HYDROCHLOROTHIAZIDE. [Concomitant]
     Active Substance: HYDROCHLOROTHIAZIDE
  36. VALACYCLOVIR [Concomitant]
     Active Substance: VALACYCLOVIR HYDROCHLORIDE
  37. DOCUSATE SODIUM. [Concomitant]
     Active Substance: DOCUSATE SODIUM
  38. LEVOFLOXACIN. [Concomitant]
     Active Substance: LEVOFLOXACIN
  39. LOSARTAN. [Concomitant]
     Active Substance: LOSARTAN
  40. CEPHALEXIN [CEFALEXIN] [Concomitant]
     Active Substance: CEPHALEXIN
  41. EMTRIVA [Concomitant]
     Active Substance: EMTRICITABINE
  42. HYDROCODONE [Concomitant]
     Active Substance: HYDROCODONE
  43. FAMOTIDINE. [Concomitant]
     Active Substance: FAMOTIDINE
  44. RISPERIDONE. [Concomitant]
     Active Substance: RISPERIDONE
  45. ISOSORBIDE MONONITRATE. [Concomitant]
     Active Substance: ISOSORBIDE MONONITRATE
  46. VIREAD [Suspect]
     Active Substance: TENOFOVIR DISOPROXIL FUMARATE
     Dosage: UNK
     Route: 048
     Dates: start: 20090720, end: 20150603
  47. NORVIR [Concomitant]
     Active Substance: RITONAVIR
  48. DIPHENOXYLATE [Concomitant]
     Active Substance: DIPHENOXYLATE
  49. ATAZANAVIR. [Concomitant]
     Active Substance: ATAZANAVIR
  50. CLONIDINE. [Concomitant]
     Active Substance: CLONIDINE
  51. NIFEDIPINE. [Concomitant]
     Active Substance: NIFEDIPINE
  52. SERTRALINE [Concomitant]
     Active Substance: SERTRALINE HYDROCHLORIDE
  53. DIPHENHYDRAMINE. [Concomitant]
     Active Substance: DIPHENHYDRAMINE
  54. GABAPENTIN. [Concomitant]
     Active Substance: GABAPENTIN
  55. ATORVASTATIN [Concomitant]
     Active Substance: ATORVASTATIN
  56. CYCLOBENZAPRINE. [Concomitant]
     Active Substance: CYCLOBENZAPRINE

REACTIONS (4)
  - Depression [Not Recovered/Not Resolved]
  - Chronic kidney disease [Not Recovered/Not Resolved]
  - End stage renal disease [Not Recovered/Not Resolved]
  - Anxiety [Not Recovered/Not Resolved]

NARRATIVE: CASE EVENT DATE: 200908
